FAERS Safety Report 12835865 (Version 1)
Quarter: 2016Q4

REPORT INFORMATION
  Report Type: Spontaneous
  Country: FR (occurrence: FR)
  Receive Date: 20161011
  Receipt Date: 20161011
  Transmission Date: 20170207
  Serious: Yes (Death, Hospitalization)
  Sender: FDA-Public Use
  Company Number: FR-PFIZER INC-2016461583

PATIENT
  Age: 41 Year
  Sex: Male

DRUGS (14)
  1. METEOSPASMYL [Concomitant]
     Active Substance: ALVERINE CITRATE\DIMETHICONE
  2. KEPPRA [Concomitant]
     Active Substance: LEVETIRACETAM
  3. CAELYX [Suspect]
     Active Substance: DOXORUBICIN HYDROCHLORIDE
     Indication: HODGKIN^S DISEASE
     Dosage: 18 MG,  THREE TIMES A MONTH
     Route: 042
     Dates: start: 20160701, end: 20160729
  4. LEVACT [Suspect]
     Active Substance: BENDAMUSTINE HYDROCHLORIDE
     Indication: HODGKIN^S DISEASE
     Dosage: 200 MG, 1X/DAY
     Route: 042
     Dates: start: 20160811, end: 20160812
  5. NEUPOGEN [Concomitant]
     Active Substance: FILGRASTIM
  6. CIPROFLOXACIN. [Concomitant]
     Active Substance: CIPROFLOXACIN
     Dosage: UNK
     Dates: start: 20160816
  7. NAVELBINE [Suspect]
     Active Substance: VINORELBINE TARTRATE
     Indication: HODGKIN^S DISEASE
     Dosage: 27 MG,  THREE TIMES A MOTH
     Route: 042
     Dates: start: 20160701, end: 20160729
  8. CORTANCYL [Concomitant]
     Active Substance: PREDNISONE
  9. EPREX [Concomitant]
     Active Substance: ERYTHROPOIETIN
  10. ALLOPURINOL. [Concomitant]
     Active Substance: ALLOPURINOL
  11. GEMCITABINE HYDROCHLORIDE. [Suspect]
     Active Substance: GEMCITABINE HYDROCHLORIDE
     Indication: HODGKIN^S DISEASE
     Dosage: 1440 MG, THREE TIMES A MOTH
     Route: 042
     Dates: start: 20160701, end: 20160729
  12. RULID [Concomitant]
     Active Substance: ROXITHROMYCIN
     Dosage: UNK
     Dates: start: 20160816
  13. WELLVONE [Concomitant]
     Active Substance: ATOVAQUONE
  14. PRIMPERAN [Concomitant]
     Active Substance: METOCLOPRAMIDE HYDROCHLORIDE

REACTIONS (2)
  - Jaundice cholestatic [Fatal]
  - Febrile bone marrow aplasia [Fatal]

NARRATIVE: CASE EVENT DATE: 20160805
